FAERS Safety Report 26117607 (Version 1)
Quarter: 2025Q4

REPORT INFORMATION
  Report Type: Spontaneous
  Country: US (occurrence: None)
  Receive Date: 20251203
  Receipt Date: 20251203
  Transmission Date: 20260117
  Serious: No
  Sender: FDA-CTU
  Company Number: None

PATIENT
  Age: 76 Year
  Sex: Male

DRUGS (1)
  1. LENALIDOMIDE [Suspect]
     Active Substance: LENALIDOMIDE
     Indication: Follicular lymphoma
     Dosage: 20MG QD ORAL
     Route: 048
     Dates: start: 20251104

REACTIONS (2)
  - Rash erythematous [None]
  - Rash papular [None]

NARRATIVE: CASE EVENT DATE: 20251118
